FAERS Safety Report 6822440-3 (Version None)
Quarter: 2010Q3

REPORT INFORMATION
  Report Type: 
  Country: None (occurrence: None)
  Receive Date: 20100708
  Receipt Date: 20100629
  Transmission Date: 20110219
  Serious: Yes (Hospitalization)
  Sender: FDA-Public Use
  Company Number: US-JNJFOC-20100700531

PATIENT
  Age: 50 Year
  Sex: Female

DRUGS (7)
  1. REMICADE [Suspect]
     Indication: COLITIS ULCERATIVE
     Route: 042
  2. REMICADE [Suspect]
     Dosage: 1 DOSE ADMINISTERED 6 YEARS PRIOR TO 2ND INFUSION
     Route: 042
  3. REMICADE [Suspect]
     Route: 042
  4. ENTOCORT EC [Concomitant]
  5. CANASA [Concomitant]
     Indication: COLITIS ULCERATIVE
  6. BENADRYL [Concomitant]
     Indication: PREMEDICATION
  7. TYLENOL [Concomitant]
     Indication: PREMEDICATION

REACTIONS (2)
  - INFUSION RELATED REACTION [None]
  - LUPUS-LIKE SYNDROME [None]
